FAERS Safety Report 7237385-7 (Version None)
Quarter: 2011Q1

REPORT INFORMATION
  Report Type: 
  Country: None (occurrence: None)
  Receive Date: 20110111
  Receipt Date: 20101228
  Transmission Date: 20110831
  Serious: Yes (Hospitalization, Other)
  Sender: FDA-Public Use
  Company Number: JHP201000392

PATIENT
  Age: 16 Year
  Weight: 60 kg

DRUGS (5)
  1. METHYLPREDNISOLONE [Concomitant]
  2. DEXCHLORPHENIRAMINE (DEXCHLORPHENIRAMINE) [Concomitant]
  3. EPINEPHRINE [Suspect]
     Dosage: 0.2 MG, INTRAVENOUS ; 0.05/KG/MIN, INTRAVENOUS
     Route: 042
  4. EPINEPHRINE [Suspect]
     Indication: ANGIOEDEMA
     Dosage: 1 MG, SINGLE, SUBCUTANEOUS
     Route: 058
  5. EPINEPHRINE [Suspect]
     Indication: ANAPHYLACTIC SHOCK
     Dosage: 1 MG, SINGLE, SUBCUTANEOUS
     Route: 058

REACTIONS (10)
  - ACCIDENTAL OVERDOSE [None]
  - LEFT VENTRICULAR DYSFUNCTION [None]
  - BLEEDING TIME ABNORMAL [None]
  - FIBRINOLYSIS ABNORMAL [None]
  - MEDICATION ERROR [None]
  - SINUS TACHYCARDIA [None]
  - WHITE BLOOD CELL COUNT INCREASED [None]
  - ALTERED STATE OF CONSCIOUSNESS [None]
  - BLOOD PRESSURE DIASTOLIC DECREASED [None]
  - ELECTROCARDIOGRAM ST SEGMENT ELEVATION [None]
